FAERS Safety Report 19063697 (Version 1)
Quarter: 2021Q1

REPORT INFORMATION
  Report Type: Spontaneous
  Country: US (occurrence: US)
  Receive Date: 20210326
  Receipt Date: 20210326
  Transmission Date: 20210420
  Serious: Yes (Other)
  Sender: FDA-Public Use
  Company Number: US-PROCTER_AND_GAMBLE-PH21001919

PATIENT

DRUGS (1)
  1. PEPTO?BISMOL [Suspect]
     Active Substance: BISMUTH SUBSALICYLATE
     Dosage: UNK, DRANK 2 GALLONS OF PEPTO
     Route: 048

REACTIONS (2)
  - Coma [Recovered/Resolved]
  - Hepatic failure [Not Recovered/Not Resolved]
